FAERS Safety Report 22264346 (Version 1)
Quarter: 2023Q2

REPORT INFORMATION
  Report Type: Spontaneous
  Country: US (occurrence: None)
  Receive Date: 20230427
  Receipt Date: 20230427
  Transmission Date: 20230722
  Serious: Yes (Hospitalization)
  Sender: FDA-Public Use
  Company Number: None

PATIENT
  Age: 61 Year
  Sex: Male
  Weight: 72.23 kg

DRUGS (1)
  1. ABECMA [Suspect]
     Active Substance: IDECABTAGENE VICLEUCEL
     Indication: Plasma cell myeloma
     Dates: start: 20230303, end: 20230316

REACTIONS (6)
  - Chills [None]
  - Fatigue [None]
  - Pain [None]
  - Cytokine release syndrome [None]
  - Neutropenia [None]
  - Infusion related reaction [None]

NARRATIVE: CASE EVENT DATE: 20230303
